FAERS Safety Report 25963992 (Version 1)
Quarter: 2025Q4

REPORT INFORMATION
  Report Type: Report from Study
  Country: US (occurrence: US)
  Receive Date: 20251027
  Receipt Date: 20251027
  Transmission Date: 20260118
  Serious: Yes (Hospitalization, Other)
  Sender: IPSEN BIOPHARMACEUTICALS, INC.
  Company Number: US-IPSEN Group, Research and Development-2024-22477

PATIENT
  Age: 60 Year
  Sex: Male
  Weight: 96 kg

DRUGS (11)
  1. ONIVYDE [Suspect]
     Active Substance: IRINOTECAN HYDROCHLORIDE
     Indication: Cholangiocarcinoma
     Dosage: PER CYCLE
     Route: 042
  2. ONIVYDE [Suspect]
     Active Substance: IRINOTECAN HYDROCHLORIDE
     Dosage: PER CYCLE
     Route: 042
     Dates: start: 20241022, end: 20241105
  3. LEUCOVORIN [Suspect]
     Active Substance: LEUCOVORIN\LEUCOVORIN CALCIUM
     Indication: Cholangiocarcinoma
     Dosage: PER CYCLE
     Route: 042
  4. LEUCOVORIN [Suspect]
     Active Substance: LEUCOVORIN\LEUCOVORIN CALCIUM
     Dosage: PER CYCLE
     Route: 042
     Dates: start: 20241022, end: 20241105
  5. FLUOROURACIL [Suspect]
     Active Substance: FLUOROURACIL
     Indication: Cholangiocarcinoma
     Dosage: PER CYCLE
     Route: 042
  6. FLUOROURACIL [Suspect]
     Active Substance: FLUOROURACIL
     Dosage: PER CYCLE
     Route: 042
     Dates: start: 20241022, end: 20241105
  7. ATROPINE [Suspect]
     Active Substance: ATROPINE
     Indication: Product used for unknown indication
     Dosage: PER CYCLE
     Route: 042
  8. INSULIN ASPART [Concomitant]
     Active Substance: INSULIN ASPART
     Indication: Type 2 diabetes mellitus
     Dosage: DOSE: 1 UNIT?FREQUENCY: BEFORE MEALS
     Route: 058
  9. INSULIN GLARGINE [Concomitant]
     Active Substance: INSULIN GLARGINE
     Indication: Type 2 diabetes mellitus
     Dosage: DOSE: 15 UNITS?FREQUENCY: BEFORE BEDTIME (HS)
     Route: 058
     Dates: start: 2018
  10. LOSARTAN [Concomitant]
     Active Substance: LOSARTAN
     Indication: Hypertension
     Route: 048
     Dates: start: 2012
  11. METOPROLOL [Concomitant]
     Active Substance: METOPROLOL
     Indication: Hypertension
     Route: 048
     Dates: start: 2012

REACTIONS (1)
  - Enteritis leukopenic [Recovered/Resolved with Sequelae]

NARRATIVE: CASE EVENT DATE: 20241101
